FAERS Safety Report 14347629 (Version 2)
Quarter: 2018Q1

REPORT INFORMATION
  Report Type: Spontaneous
  Country: US (occurrence: US)
  Receive Date: 20180103
  Receipt Date: 20180119
  Transmission Date: 20180509
  Serious: No
  Sender: FDA-Public Use
  Company Number: PHEH2017US042170

PATIENT
  Sex: Male

DRUGS (3)
  1. NEVANAC [Suspect]
     Active Substance: NEPAFENAC
     Indication: PRODUCT USED FOR UNKNOWN INDICATION
     Dosage: 1 GTT, BID
     Route: 047
  2. ILEVRO [Concomitant]
     Active Substance: NEPAFENAC
     Indication: PRODUCT USED FOR UNKNOWN INDICATION
     Route: 047
  3. DUREZOL [Concomitant]
     Active Substance: DIFLUPREDNATE
     Indication: EYE SWELLING
     Route: 047

REACTIONS (3)
  - Head discomfort [Unknown]
  - Vision blurred [Unknown]
  - Headache [Not Recovered/Not Resolved]
